FAERS Safety Report 4870661-1 (Version None)
Quarter: 2006Q1

REPORT INFORMATION
  Report Type: 
  Country: None (occurrence: None)
  Receive Date: 20060103
  Receipt Date: 20051223
  Transmission Date: 20060701
  Serious: Yes (Life-Threatening, Hospitalization)
  Sender: FDA-Public Use
  Company Number: AT-JNJFOC-20051205044

PATIENT
  Age: 21 Year
  Sex: Male

DRUGS (10)
  1. DURAGESIC-100 [Suspect]
     Indication: PAIN MANAGEMENT
     Route: 062
  2. VENDAL [Interacting]
     Indication: DRUG USE FOR UNKNOWN INDICATION
     Route: 050
  3. OXYCONTIN [Interacting]
     Indication: DRUG USE FOR UNKNOWN INDICATION
     Route: 065
  4. XANOR [Interacting]
     Indication: DRUG USE FOR UNKNOWN INDICATION
     Route: 065
  5. SOMNUBENE [Interacting]
     Indication: DRUG USE FOR UNKNOWN INDICATION
     Route: 065
  6. GEWADAL [Interacting]
     Route: 065
  7. GEWADAL [Interacting]
     Route: 065
  8. GEWADAL [Interacting]
     Indication: DRUG USE FOR UNKNOWN INDICATION
     Dosage: 1 AMPOULE
     Route: 065
  9. VOLTAREN [Interacting]
     Indication: DRUG USE FOR UNKNOWN INDICATION
     Route: 065
  10. ESCITALOPRAM OXALATE [Suspect]
     Indication: DRUG USE FOR UNKNOWN INDICATION
     Route: 065

REACTIONS (2)
  - DRUG INTERACTION [None]
  - RESPIRATORY DEPRESSION [None]
